FAERS Safety Report 8275179-4 (Version None)
Quarter: 2012Q2

REPORT INFORMATION
  Report Type: 
  Country: None (occurrence: None)
  Receive Date: 20120411
  Receipt Date: 20120403
  Transmission Date: 20120825
  Serious: Yes (Other)
  Sender: FDA-Public Use
  Company Number: PHHY2012GB028597

PATIENT
  Age: 83 Year
  Sex: Male

DRUGS (9)
  1. ENOXAPARIN [Concomitant]
     Indication: THROMBOSIS PROPHYLAXIS
  2. PHENYTOIN [Concomitant]
     Dosage: 300 MG, QD
     Route: 048
  3. LATANOPROST [Concomitant]
     Dosage: 1 DF, QD
     Route: 061
  4. PHENOBARBITAL TAB [Concomitant]
     Dosage: 30 MG, BID
     Route: 048
  5. SENNA [Concomitant]
     Dosage: 2 DF, QD
     Route: 048
  6. LEVETIRACETAM [Suspect]
     Indication: STATUS EPILEPTICUS
     Dosage: 500 MG, BID
     Route: 048
     Dates: start: 20111020
  7. LEVETIRACETAM [Suspect]
     Indication: GRAND MAL CONVULSION
     Dosage: 250 MG, BID
     Route: 048
  8. FORTISIP [Concomitant]
  9. SIMVASTATIN [Concomitant]
     Dosage: 40 MG, QD
     Route: 048

REACTIONS (4)
  - BLOOD UREA INCREASED [None]
  - THROMBOCYTOPENIA [None]
  - NEUTROPENIA [None]
  - BLOOD SODIUM INCREASED [None]
